FAERS Safety Report 15584098 (Version 1)
Quarter: 2018Q4

REPORT INFORMATION
  Report Type: Spontaneous
  Country: US (occurrence: US)
  Receive Date: 20181105
  Receipt Date: 20181105
  Transmission Date: 20190205
  Serious: No
  Sender: FDA-Public Use
  Company Number: US-TEVA-2018-US-970030

PATIENT
  Age: 49 Year
  Sex: Male

DRUGS (1)
  1. NICOTGUM-A [Suspect]
     Active Substance: NICOTINE
     Indication: TOBACCO USER
     Route: 065
     Dates: start: 20181021

REACTIONS (1)
  - Biopsy [Unknown]

NARRATIVE: CASE EVENT DATE: 20181021
